FAERS Safety Report 19202667 (Version 1)
Quarter: 2021Q2

REPORT INFORMATION
  Report Type: Other
  Country: US (occurrence: US)
  Receive Date: 20210430
  Receipt Date: 20210430
  Transmission Date: 20210717
  Serious: No
  Sender: FDA-Public Use
  Company Number: US-ROCHE-2818350

PATIENT
  Sex: Female
  Weight: 79.9 kg

DRUGS (30)
  1. FLUCONAZOLE. [Concomitant]
     Active Substance: FLUCONAZOLE
     Indication: CANDIDA INFECTION
     Route: 048
  2. PREDNISONE. [Concomitant]
     Active Substance: PREDNISONE
     Dosage: AS NEEDED
     Route: 048
  3. DULOXETINE. [Concomitant]
     Active Substance: DULOXETINE
  4. MONTELUCAST [Concomitant]
     Active Substance: MONTELUKAST SODIUM
     Dosage: EVERY NIGHT
     Route: 048
  5. IPRATROPIUM BROMIDE. [Concomitant]
     Active Substance: IPRATROPIUM BROMIDE
     Dosage: NOSTRIL
  6. BACLOFEN. [Concomitant]
     Active Substance: BACLOFEN
     Route: 048
  7. HYDROXYZINE [Concomitant]
     Active Substance: HYDROXYZINE HYDROCHLORIDE
     Dosage: 2 IN THE MORNING AND 2 AT NIGHT
     Route: 048
  8. PROBIOTIC GUMMIES [Concomitant]
  9. KLONOPIN [Suspect]
     Active Substance: CLONAZEPAM
     Indication: ANXIETY
     Route: 065
  10. NURTEC ODT [Concomitant]
     Active Substance: RIMEGEPANT SULFATE
  11. SECNIDAZOLE [Concomitant]
     Active Substance: SECNIDAZOLE
     Dosage: FOR 2 MONTHS
     Route: 048
  12. FAMOTIDINE. [Concomitant]
     Active Substance: FAMOTIDINE
  13. FOLIC ACID. [Concomitant]
     Active Substance: FOLIC ACID
     Route: 048
  14. ONDANSETRON [Concomitant]
     Active Substance: ONDANSETRON
     Indication: NAUSEA
     Dosage: AS NEEDED
  15. ONDANSETRON [Concomitant]
     Active Substance: ONDANSETRON
     Indication: VOMITING
  16. LINZESS [Concomitant]
     Active Substance: LINACLOTIDE
     Route: 048
  17. ASPIRIN. [Concomitant]
     Active Substance: ASPIRIN
     Route: 048
  18. BOTOX [Concomitant]
     Active Substance: ONABOTULINUMTOXINA
  19. ESTRADIOL. [Concomitant]
     Active Substance: ESTRADIOL
     Route: 048
  20. LEFLUNOMIDE. [Concomitant]
     Active Substance: LEFLUNOMIDE
     Route: 048
  21. PANTOPRAZOLE [Concomitant]
     Active Substance: PANTOPRAZOLE
     Dosage: NO
     Route: 048
  22. ALBUTEROL. [Concomitant]
     Active Substance: ALBUTEROL
  23. CLONIDINE. [Concomitant]
     Active Substance: CLONIDINE
     Route: 048
  24. METHOTREXATE. [Concomitant]
     Active Substance: METHOTREXATE
     Dosage: SAME NIGHT EACH WEEK WITH FOOD
     Route: 048
  25. OXYBUTIN [Concomitant]
     Active Substance: OXYBUTYNIN
     Route: 048
  26. OCREVUS [Suspect]
     Active Substance: OCRELIZUMAB
     Indication: MULTIPLE SCLEROSIS
     Dosage: DATE OF TREATMENT: 15/MAR/2021
     Route: 042
     Dates: start: 20210301
  27. HYOSCYAMINE. [Concomitant]
     Active Substance: HYOSCYAMINE
     Route: 048
  28. DIVALPROEX [Concomitant]
     Active Substance: DIVALPROEX SODIUM
     Route: 048
  29. FLUTICASONE. [Concomitant]
     Active Substance: FLUTICASONE
     Route: 045
  30. COENZYME Q10 [Concomitant]
     Active Substance: DIETARY SUPPLEMENT\UBIDECARENONE

REACTIONS (2)
  - Candida infection [Not Recovered/Not Resolved]
  - Wheezing [Not Recovered/Not Resolved]
